FAERS Safety Report 9386497 (Version 3)
Quarter: 2013Q3

REPORT INFORMATION
  Report Type: Spontaneous
  Country: JP (occurrence: JP)
  Receive Date: 20130708
  Receipt Date: 20130822
  Transmission Date: 20140515
  Serious: Yes (Death, Life-Threatening, Hospitalization)
  Sender: FDA-Public Use
  Company Number: JP-BRISTOL-MYERS SQUIBB COMPANY-19072099

PATIENT
  Age: 70 Year
  Sex: Female

DRUGS (9)
  1. METGLUCO [Suspect]
     Indication: DIABETES MELLITUS
     Dosage: TILL 20APR13. INCREASED TO 500MG:21APR-23APR13
     Route: 048
     Dates: start: 20130419, end: 20130423
  2. MEXITIL [Concomitant]
  3. SERMION [Concomitant]
     Route: 048
  4. FERROMIA [Concomitant]
     Indication: ANAEMIA
     Route: 048
  5. MARZULENE-S [Concomitant]
     Route: 048
  6. LAC-B [Concomitant]
     Indication: STRESS ULCER
     Route: 048
  7. LAC-B [Concomitant]
     Indication: PROPHYLAXIS
     Route: 048
  8. LAC-B [Concomitant]
     Indication: GASTROOESOPHAGEAL REFLUX DISEASE
     Route: 048
  9. VILDAGLIPTIN [Concomitant]
     Indication: DIABETES MELLITUS
     Route: 048
     Dates: start: 20130406, end: 20130423

REACTIONS (2)
  - Lactic acidosis [Fatal]
  - Gastrointestinal haemorrhage [Unknown]
